FAERS Safety Report 12472298 (Version 2)
Quarter: 2016Q2

REPORT INFORMATION
  Report Type: Spontaneous
  Country: US (occurrence: US)
  Receive Date: 20160616
  Receipt Date: 20160616
  Transmission Date: 20160815
  Serious: No
  Sender: FDA-Public Use
  Company Number: US-GE HEALTHCARE MEDICAL DIAGNOSTICS-OMPQ-PR-1603S-0292

PATIENT
  Age: 62 Year
  Sex: Female
  Weight: 80.36 kg

DRUGS (3)
  1. OMNIPAQUE [Suspect]
     Active Substance: IOHEXOL
     Indication: DIAGNOSTIC PROCEDURE
  2. CRESTOR [Concomitant]
     Active Substance: ROSUVASTATIN CALCIUM
  3. OMNIPAQUE [Suspect]
     Active Substance: IOHEXOL
     Indication: LYMPHADENOPATHY
     Route: 042
     Dates: start: 20160311, end: 20160311

REACTIONS (2)
  - Erythema [Recovered/Resolved]
  - Sneezing [Recovered/Resolved]

NARRATIVE: CASE EVENT DATE: 20160311
